FAERS Safety Report 9018401 (Version 1)
Quarter: 2013Q1

REPORT INFORMATION
  Report Type: Spontaneous
  Country: US (occurrence: US)
  Receive Date: 20130118
  Receipt Date: 20130118
  Transmission Date: 20140127
  Serious: No
  Sender: FDA-Public Use
  Company Number: US-PFIZER INC-2013018621

PATIENT
  Age: 8 Year
  Sex: Female
  Weight: 24.04 kg

DRUGS (1)
  1. AZITHROMYCIN [Suspect]
     Indication: OTITIS MEDIA
     Dosage: UNK, 1X/DAY
     Route: 048
     Dates: start: 20130110, end: 20130113

REACTIONS (7)
  - Insomnia [Not Recovered/Not Resolved]
  - Pruritus [Not Recovered/Not Resolved]
  - Neck pain [Not Recovered/Not Resolved]
  - Musculoskeletal stiffness [Not Recovered/Not Resolved]
  - Back pain [Not Recovered/Not Resolved]
  - Headache [Not Recovered/Not Resolved]
  - Nausea [Not Recovered/Not Resolved]
